FAERS Safety Report 14633787 (Version 2)
Quarter: 2018Q3

REPORT INFORMATION
  Report Type: Spontaneous
  Country: DK (occurrence: DK)
  Receive Date: 20180314
  Receipt Date: 20180918
  Transmission Date: 20181010
  Serious: Yes (Death, Hospitalization)
  Sender: FDA-Public Use
  Company Number: DK-ROCHE-2088729

PATIENT
  Age: 72 Year
  Sex: Male
  Weight: 95 kg

DRUGS (4)
  1. MABTHERA [Suspect]
     Active Substance: RITUXIMAB
     Indication: MANTLE CELL LYMPHOMA
     Route: 042
     Dates: start: 20171114, end: 20171114
  2. BENDAMUSTINE HYDROCHLORIDE. [Concomitant]
     Active Substance: BENDAMUSTINE HYDROCHLORIDE
     Indication: MANTLE CELL LYMPHOMA
     Dosage: ALSO RECEIVED ON 11/OCT/2017 AND 14/NOV/2017
     Route: 042
     Dates: start: 20171010
  3. ALLOPURINOL. [Concomitant]
     Active Substance: ALLOPURINOL
     Indication: AZOTAEMIA
     Route: 065
     Dates: start: 20170929, end: 20171106
  4. PREDNISOLONE. [Concomitant]
     Active Substance: PREDNISOLONE
     Indication: MANTLE CELL LYMPHOMA
     Dosage: ALSO RECEIVED ON 14/NOV/2017
     Route: 048
     Dates: start: 20171029

REACTIONS (11)
  - Renal impairment [Fatal]
  - Atrial fibrillation [Fatal]
  - Tumour lysis syndrome [Fatal]
  - Hyperhidrosis [Unknown]
  - Cytokine release syndrome [Fatal]
  - Cardiac arrest [Recovered/Resolved]
  - Erythema [Unknown]
  - Acute respiratory distress syndrome [Fatal]
  - Hyperkalaemia [Fatal]
  - Hypotension [Unknown]
  - Blood lactate dehydrogenase increased [Not Recovered/Not Resolved]

NARRATIVE: CASE EVENT DATE: 20171114
